FAERS Safety Report 5619459-7 (Version None)
Quarter: 2008Q1

REPORT INFORMATION
  Report Type: 
  Country: None (occurrence: None)
  Receive Date: 20080109
  Receipt Date: 20070531
  Transmission Date: 20080703
  Serious: Yes (Hospitalization)
  Sender: FDA-Public Use
  Company Number: WAES 0706USA01122

PATIENT
  Age: 59 Year
  Sex: Male

DRUGS (3)
  1. ZETIA [Suspect]
     Dosage: PO
     Route: 048
     Dates: end: 20070406
  2. ZOCOR [Suspect]
     Dosage: PO
     Route: 048
     Dates: end: 20070406
  3. LOPID [Suspect]
     Dates: end: 20070406

REACTIONS (1)
  - RHABDOMYOLYSIS [None]
